FAERS Safety Report 15759848 (Version 4)
Quarter: 2019Q2

REPORT INFORMATION
  Report Type: Spontaneous
  Country: JP (occurrence: JP)
  Receive Date: 20181226
  Receipt Date: 20190510
  Transmission Date: 20190711
  Serious: Yes (Hospitalization)
  Sender: FDA-Public Use
  Company Number: JP-ASTELLAS-2018JP024240

PATIENT
  Age: 73 Year
  Sex: Female
  Weight: 48 kg

DRUGS (162)
  1. MYSLEE [Concomitant]
     Active Substance: ZOLPIDEM TARTRATE
     Route: 048
     Dates: start: 20170901, end: 20171010
  2. MERISLON [Concomitant]
     Active Substance: BETAHISTINE MESILATE
     Indication: PRODUCT USED FOR UNKNOWN INDICATION
     Dosage: 6 MG, THRICE DAILY, AFTER EACH MEAL
     Route: 048
     Dates: start: 20151204, end: 20160108
  3. MERISLON [Concomitant]
     Active Substance: BETAHISTINE MESILATE
     Dosage: 6 MG, THRICE DAILY, AFTER EACH MEAL
     Route: 048
     Dates: start: 20170828, end: 20170924
  4. MERISLON [Concomitant]
     Active Substance: BETAHISTINE MESILATE
     Dosage: 6 MG, THRICE DAILY, AFTER EACH MEAL
     Route: 048
     Dates: start: 20171222, end: 20180120
  5. NASONEX [Concomitant]
     Active Substance: MOMETASONE FUROATE
     Route: 045
     Dates: start: 20181023
  6. SYMMETREL [Concomitant]
     Active Substance: AMANTADINE HYDROCHLORIDE
     Indication: PRODUCT USED FOR UNKNOWN INDICATION
     Dosage: 25 MG, TWICE DAILY, AFTER BREAKFAST AND SUPPER, 14 DAYS
     Route: 048
     Dates: start: 20180208, end: 20180320
  7. FLUITRAN [Concomitant]
     Active Substance: TRICHLORMETHIAZIDE
     Dosage: 2 MG, ONCE DAILY, AFTER BREAKFAST
     Route: 048
     Dates: start: 20160512, end: 20170125
  8. RIZE                               /00624801/ [Concomitant]
     Active Substance: CLOTIAZEPAM
     Dosage: UNK UNK, THRICE DAILY
     Route: 048
     Dates: start: 20170413, end: 20170604
  9. RIZE                               /00624801/ [Concomitant]
     Active Substance: CLOTIAZEPAM
     Dosage: 5 MG, THRICE DAILY
     Route: 048
     Dates: start: 20180122, end: 20180124
  10. RIZE                               /00624801/ [Concomitant]
     Active Substance: CLOTIAZEPAM
     Dosage: 5 MG, THRICE DAILY
     Route: 048
     Dates: start: 20181112, end: 20181121
  11. ENSURE [Concomitant]
     Active Substance: AMINO ACIDS\DEXTROSE\ELECTROLYTES NOS\SOYBEAN OIL\VITAMINS
     Dosage: 1 UNK, ONCE DAILY
     Route: 048
     Dates: start: 20151105, end: 20151121
  12. VOLTAREN [Concomitant]
     Active Substance: DICLOFENAC SODIUM
     Route: 065
     Dates: start: 20180621
  13. LOCOID [Concomitant]
     Active Substance: HYDROCORTISONE BUTYRATE
     Indication: PRODUCT USED FOR UNKNOWN INDICATION
     Route: 050
     Dates: start: 20151006
  14. LOXONIN [Concomitant]
     Active Substance: LOXOPROFEN SODIUM
     Dosage: UNK UNK, ONCE DAILY
     Route: 050
     Dates: start: 20151027
  15. LASIX [Concomitant]
     Active Substance: FUROSEMIDE
     Dosage: 20 MG, ONCE DAILY, AFTER BREAKFAST
     Route: 065
     Dates: start: 20160512, end: 20180114
  16. ADALAT [Concomitant]
     Active Substance: NIFEDIPINE
     Indication: BLOOD PRESSURE INCREASED
     Route: 065
     Dates: start: 20171205
  17. ADALAT [Concomitant]
     Active Substance: NIFEDIPINE
     Route: 065
     Dates: start: 20180111
  18. ADALAT [Concomitant]
     Active Substance: NIFEDIPINE
     Route: 065
     Dates: start: 20180301
  19. ADALAT [Concomitant]
     Active Substance: NIFEDIPINE
     Route: 065
     Dates: start: 20181015
  20. BETANIS [Suspect]
     Active Substance: MIRABEGRON
     Indication: POLLAKIURIA
     Dosage: 50 MG, ONCE DAILY, AFTER BREAKFAST
     Route: 048
     Dates: start: 20150827, end: 20181130
  21. MYSLEE [Concomitant]
     Active Substance: ZOLPIDEM TARTRATE
     Dosage: 5 MG, ONCE DAILY, BEFORE SLEEPING
     Route: 048
     Dates: start: 20181014, end: 20181124
  22. NASONEX [Concomitant]
     Active Substance: MOMETASONE FUROATE
     Route: 045
     Dates: start: 20181109
  23. CONSTAN                            /00595201/ [Concomitant]
     Active Substance: ALPRAZOLAM
     Indication: RESTLESSNESS
     Dosage: UNK UNK, AS NEEDED
     Route: 048
     Dates: start: 20180208
  24. ADETPHOS [Concomitant]
     Active Substance: ADENOSINE TRIPHOSPHATE
     Dosage: 1 G, THRICE DAILY, AFTER EACH MEAL, 14 DAYS
     Route: 048
     Dates: start: 20181023, end: 20181029
  25. ADALAT [Concomitant]
     Active Substance: NIFEDIPINE
     Dosage: 20 MG, ONCE DAILY, AFTER SUPPER
     Route: 048
     Dates: start: 20160609, end: 20170301
  26. MAINTATE [Concomitant]
     Active Substance: BISOPROLOL FUMARATE
     Indication: PRODUCT USED FOR UNKNOWN INDICATION
     Dosage: 5 MG, ONCE DAILY, AFTER BREAKFAST
     Route: 048
     Dates: start: 20150827, end: 20160406
  27. MAINTATE [Concomitant]
     Active Substance: BISOPROLOL FUMARATE
     Route: 048
     Dates: start: 20170126, end: 20180113
  28. RIZE                               /00624801/ [Concomitant]
     Active Substance: CLOTIAZEPAM
     Dosage: UNK UNK, THRICE DAILY, AFTER EACH MEAL
     Route: 048
     Dates: start: 20151105, end: 20151204
  29. PRIMPERAN [Concomitant]
     Active Substance: METOCLOPRAMIDE HYDROCHLORIDE
     Route: 048
     Dates: start: 20171027, end: 20171210
  30. VOLTAREN [Concomitant]
     Active Substance: DICLOFENAC SODIUM
     Route: 065
     Dates: start: 20160901
  31. LOXONIN [Concomitant]
     Active Substance: LOXOPROFEN SODIUM
     Dosage: ONE PIECE, ONCE DAILY
     Route: 050
     Dates: start: 20160721
  32. LOXONIN [Concomitant]
     Active Substance: LOXOPROFEN SODIUM
     Dosage: ONE PIECE, ONCE DAILY
     Route: 050
     Dates: start: 20161201
  33. LOXONIN [Concomitant]
     Active Substance: LOXOPROFEN SODIUM
     Dosage: ONE PIECE, ONCE DAILY
     Route: 050
     Dates: start: 20170803
  34. LOXONIN [Concomitant]
     Active Substance: LOXOPROFEN SODIUM
     Dosage: ONE PIECE, ONCE DAILY
     Route: 050
     Dates: start: 20180719
  35. MAGMITT [Concomitant]
     Active Substance: MAGNESIUM OXIDE
     Indication: PRODUCT USED FOR UNKNOWN INDICATION
     Dosage: 250 MG, THRICE DAILY, AFTER EACH MEAL
     Route: 048
     Dates: start: 20151210, end: 20160108
  36. TSUMURA CHOREITO [Concomitant]
     Indication: PRODUCT USED FOR UNKNOWN INDICATION
     Dosage: 1 PACK, THRICE DAILY, BEFORE EACH MEAL
     Route: 065
     Dates: start: 20160721, end: 20160928
  37. GLUCONSAN K [Concomitant]
     Active Substance: POTASSIUM GLUCONATE
     Indication: PRODUCT USED FOR UNKNOWN INDICATION
     Dosage: 2 G, THRICE DAILY, AFTER EACH MEAL
     Route: 065
     Dates: start: 20171023, end: 20171027
  38. GLUCONSAN K [Concomitant]
     Active Substance: POTASSIUM GLUCONATE
     Dosage: 2 G, THRICE DAILY, AFTER EACH MEAL
     Route: 065
     Dates: start: 20180702, end: 20180708
  39. ADALAT [Concomitant]
     Active Substance: NIFEDIPINE
     Route: 065
     Dates: start: 20180702
  40. MYSLEE [Concomitant]
     Active Substance: ZOLPIDEM TARTRATE
     Route: 048
     Dates: start: 20171019, end: 20180103
  41. NASONEX [Concomitant]
     Active Substance: MOMETASONE FUROATE
     Indication: PRODUCT USED FOR UNKNOWN INDICATION
     Route: 045
     Dates: start: 20170901
  42. NASONEX [Concomitant]
     Active Substance: MOMETASONE FUROATE
     Route: 045
     Dates: start: 20171120
  43. NASONEX [Concomitant]
     Active Substance: MOMETASONE FUROATE
     Route: 045
     Dates: start: 20180129
  44. FLUITRAN [Concomitant]
     Active Substance: TRICHLORMETHIAZIDE
     Dosage: 2 MG, ONCE DAILY, AFTER BREAKFAST
     Route: 048
     Dates: start: 20180426, end: 20181205
  45. MAINTATE [Concomitant]
     Active Substance: BISOPROLOL FUMARATE
     Dosage: 5 MG, ONCE DAILY, AFTER BREAKFAST
     Route: 048
     Dates: start: 20160512, end: 20170125
  46. HANGEKOBOKUTO [Concomitant]
     Active Substance: HERBALS
     Indication: PRODUCT USED FOR UNKNOWN INDICATION
     Dosage: 1 PACK, THRICE DAILY, BEFORE EACH MEAL
     Route: 065
     Dates: start: 20150827, end: 20160406
  47. TRAMCET [Concomitant]
     Active Substance: ACETAMINOPHEN\TRAMADOL
     Dosage: UNK UNK, THRICE DAILY, AFTER EACH MEAL
     Route: 048
     Dates: start: 20150929, end: 20151012
  48. PRIMPERAN [Concomitant]
     Active Substance: METOCLOPRAMIDE HYDROCHLORIDE
     Indication: NAUSEA
     Route: 048
     Dates: start: 20150915, end: 20150925
  49. LOXONIN [Concomitant]
     Active Substance: LOXOPROFEN SODIUM
     Dosage: UNK UNK, ONCE DAILY
     Route: 050
     Dates: start: 20151222
  50. LOXONIN [Concomitant]
     Active Substance: LOXOPROFEN SODIUM
     Dosage: ONE PIECE, ONCE DAILY
     Route: 050
     Dates: start: 20180510
  51. METGLUCO [Concomitant]
     Active Substance: METFORMIN HYDROCHLORIDE
     Indication: PRODUCT USED FOR UNKNOWN INDICATION
     Dosage: 250 MG, ONCE DAILY, AFTER BREAKFAST
     Route: 065
     Dates: start: 20161117, end: 20170301
  52. AZILVA [Concomitant]
     Active Substance: AZILSARTAN KAMEDOXOMIL
     Indication: PRODUCT USED FOR UNKNOWN INDICATION
     Dosage: 20 MG, TWICE DAILY, AFTER BREAKFAST AND SUPPER
     Route: 065
     Dates: start: 20170126, end: 20170604
  53. MIYA-BM [Concomitant]
     Active Substance: CLOSTRIDIUM BUTYRICUM SPORES STRAIN M-55
     Indication: PRODUCT USED FOR UNKNOWN INDICATION
     Route: 065
     Dates: start: 20171008, end: 20171009
  54. NORMAL SALINE [Concomitant]
     Active Substance: SODIUM CHLORIDE
     Indication: PRODUCT USED FOR UNKNOWN INDICATION
     Dosage: 1 G, THRICE DAILY, AFTER EACH MEAL
     Route: 065
     Dates: start: 20171018, end: 20171022
  55. NORMAL SALINE [Concomitant]
     Active Substance: SODIUM CHLORIDE
     Dosage: 1 G, THRICE DAILY, AFTER EACH MEAL
     Route: 065
     Dates: start: 20171124, end: 20171130
  56. NAUZELIN [Concomitant]
     Active Substance: DOMPERIDONE
     Indication: NAUSEA
     Route: 065
     Dates: start: 20181029, end: 20181115
  57. MYSLEE [Concomitant]
     Active Substance: ZOLPIDEM TARTRATE
     Indication: PRODUCT USED FOR UNKNOWN INDICATION
     Dosage: 5 MG, ONCE DAILY, BEFORE SLEEPING
     Route: 048
     Dates: start: 20151211, end: 20151220
  58. ADETPHOS [Concomitant]
     Active Substance: ADENOSINE TRIPHOSPHATE
     Dosage: 1 G, THRICE DAILY, AFTER EACH MEAL, 14 DAYS
     Route: 048
     Dates: start: 20180608, end: 20180705
  59. DIOVAN [Concomitant]
     Active Substance: VALSARTAN
     Indication: PRODUCT USED FOR UNKNOWN INDICATION
     Dosage: 80 MG, TWICE DAILY, AFTER BREAKFAST AND SUPPER
     Route: 048
     Dates: start: 20150827, end: 20160406
  60. ADALAT [Concomitant]
     Active Substance: NIFEDIPINE
     Indication: PRODUCT USED FOR UNKNOWN INDICATION
     Dosage: 20 MG, TWICE DAILY, AFTER BREAKFAST AND SUPPER
     Route: 048
     Dates: start: 20150827, end: 20151209
  61. SENNA [Concomitant]
     Active Substance: SENNA LEAF\SENNOSIDES\SENNOSIDES A AND B
     Dosage: 0.5 G, ONCE DAILY, AFTER BREAKFAST
     Route: 048
     Dates: start: 20160512, end: 20170125
  62. RIZE                               /00624801/ [Concomitant]
     Active Substance: CLOTIAZEPAM
     Dosage: UNK UNK, THRICE DAILY, AFTER EACH MEAL
     Route: 048
     Dates: start: 20160128, end: 20160226
  63. ENSURE [Concomitant]
     Active Substance: AMINO ACIDS\DEXTROSE\ELECTROLYTES NOS\SOYBEAN OIL\VITAMINS
     Indication: PRODUCT USED FOR UNKNOWN INDICATION
     Dosage: 1 TUBE, ONCE DAILY, AFTER BREAKFAST
     Route: 048
     Dates: start: 20150827, end: 20151014
  64. DEPAS [Concomitant]
     Dosage: 0.5 DF, ONCE DAILY
     Route: 065
     Dates: start: 20180126, end: 20180228
  65. DEPAS [Concomitant]
     Dosage: 0.5 DF, ONCE DAILY
     Route: 065
     Dates: start: 20180301, end: 20180708
  66. TAKEPRON [Concomitant]
     Active Substance: LANSOPRAZOLE
     Indication: PRODUCT USED FOR UNKNOWN INDICATION
     Dosage: 30 MG, ONCE DAILY, AFTER BREAKFAST
     Route: 048
     Dates: start: 20150924, end: 20151007
  67. VOLTAREN [Concomitant]
     Active Substance: DICLOFENAC SODIUM
     Route: 065
     Dates: start: 20180510
  68. LYRICA [Concomitant]
     Active Substance: PREGABALIN
     Indication: PRODUCT USED FOR UNKNOWN INDICATION
     Dosage: 50 MG, TWICE DAILY, AFTER BREAKFAST AND SUPPER
     Route: 048
     Dates: start: 20151006, end: 20160120
  69. LOXONIN [Concomitant]
     Active Substance: LOXOPROFEN SODIUM
     Indication: PRODUCT USED FOR UNKNOWN INDICATION
     Dosage: UNK UNK, ONCE DAILY
     Route: 050
     Dates: start: 20151013
  70. LOXONIN [Concomitant]
     Active Substance: LOXOPROFEN SODIUM
     Dosage: UNK UNK, ONCE DAILY
     Route: 050
     Dates: start: 20151124
  71. LOXONIN [Concomitant]
     Active Substance: LOXOPROFEN SODIUM
     Dosage: ONE PIECE, ONCE DAILY
     Route: 050
     Dates: start: 20180124
  72. BELSOMRA [Concomitant]
     Active Substance: SUVOREXANT
     Indication: PRODUCT USED FOR UNKNOWN INDICATION
     Dosage: 15 MG, ONCE DAILY, BEFORE SLEEPING
     Route: 065
     Dates: start: 20160609, end: 20160803
  73. LAC-B [Concomitant]
     Active Substance: BIFIDOBACTERIUM SPP.
     Dosage: 1 G, THRICE DAILY, AFTER EACH MEAL
     Route: 065
     Dates: start: 20170413, end: 20171130
  74. MARZULENE S [Concomitant]
     Active Substance: GLUTAMINE\SODIUM GUALENATE
     Indication: PRODUCT USED FOR UNKNOWN INDICATION
     Dosage: UNK UNK, THRICE DAILY, AFTER EACH MEAL
     Route: 065
     Dates: start: 20160201, end: 20160204
  75. METGLUCO [Concomitant]
     Active Substance: METFORMIN HYDROCHLORIDE
     Dosage: 250 MG, TWICE DAILY, AFTER BREAKFAST
     Route: 065
     Dates: start: 20170413, end: 20180119
  76. AZILVA [Concomitant]
     Active Substance: AZILSARTAN KAMEDOXOMIL
     Dosage: 20 MG, ONCE DAILY, AFTER BREAKFAST
     Route: 065
     Dates: start: 20180111, end: 20181205
  77. ADALAT [Concomitant]
     Active Substance: NIFEDIPINE
     Route: 065
     Dates: start: 20180426
  78. MYSLEE [Concomitant]
     Active Substance: ZOLPIDEM TARTRATE
     Route: 048
     Dates: start: 20180111, end: 20180929
  79. NASONEX [Concomitant]
     Active Substance: MOMETASONE FUROATE
     Route: 045
     Dates: start: 20171020
  80. RIVOTRIL [Concomitant]
     Active Substance: CLONAZEPAM
     Indication: PRODUCT USED FOR UNKNOWN INDICATION
     Dosage: 0.5 MG, ONCE DAILY, BEFORE SLEEPING, 14 DAYS
     Route: 048
     Dates: start: 20180208, end: 20180320
  81. DIOVAN [Concomitant]
     Active Substance: VALSARTAN
     Dosage: 80 MG, TWICE DAILY, AFTER BREAKFAST AND SUPPER
     Route: 048
     Dates: start: 20160512, end: 20170125
  82. FLUITRAN [Concomitant]
     Active Substance: TRICHLORMETHIAZIDE
     Dosage: 2 MG, ONCE DAILY, AFTER BREAKFAST
     Route: 048
     Dates: start: 20170126, end: 20180113
  83. ADALAT [Concomitant]
     Active Substance: NIFEDIPINE
     Route: 048
     Dates: start: 20151210, end: 20160406
  84. ADALAT [Concomitant]
     Active Substance: NIFEDIPINE
     Route: 048
     Dates: start: 20180301, end: 20180708
  85. ADALAT [Concomitant]
     Active Substance: NIFEDIPINE
     Route: 048
     Dates: start: 20181025, end: 20181205
  86. DEPAS [Concomitant]
     Dosage: 0.5 DF, THRICE DAILY
     Route: 048
     Dates: start: 20150929, end: 20160120
  87. LOXONIN [Concomitant]
     Active Substance: LOXOPROFEN SODIUM
     Indication: PRODUCT USED FOR UNKNOWN INDICATION
     Dosage: 60MG, THRICE DAILY, AFTER EACH MEAL, 2 DAYS
     Route: 065
     Dates: start: 20150915, end: 20150925
  88. SATOSALBE [Concomitant]
     Active Substance: ZINC OXIDE
     Indication: PRODUCT USED FOR UNKNOWN INDICATION
     Route: 050
     Dates: start: 20151006
  89. LOXONIN [Concomitant]
     Active Substance: LOXOPROFEN SODIUM
     Dosage: 3 PIECES, ONCE DAILY
     Route: 050
     Dates: start: 20160512
  90. LOXONIN [Concomitant]
     Active Substance: LOXOPROFEN SODIUM
     Dosage: ONE PIECE, ONCE DAILY
     Route: 050
     Dates: start: 20181022
  91. ADALAT [Concomitant]
     Active Substance: NIFEDIPINE
     Dosage: 40 MG, ONCE DAILY, AFTER BREAKFAST AND SUPPER
     Route: 048
     Dates: start: 20160512, end: 20180213
  92. LASIX [Concomitant]
     Active Substance: FUROSEMIDE
     Indication: PRODUCT USED FOR UNKNOWN INDICATION
     Route: 065
     Dates: start: 20160128, end: 20160406
  93. TAKECAB [Concomitant]
     Active Substance: VONOPRAZAN FUMURATE
     Indication: PRODUCT USED FOR UNKNOWN INDICATION
     Dosage: 10 MG, ONCE DAILY, AFTER BREAKFAST
     Route: 065
     Dates: start: 20160512, end: 20180113
  94. BELSOMRA [Concomitant]
     Active Substance: SUVOREXANT
     Route: 065
     Dates: start: 20161222, end: 20170120
  95. TSUMURA CHOREITO [Concomitant]
     Dosage: 1 PACK, THRICE DAILY, BEFORE EACH MEAL
     Route: 065
     Dates: start: 20161006, end: 20161109
  96. BUSCOPAN [Concomitant]
     Active Substance: BUTYLSCOPOLAMINE BROMIDE
     Indication: PRODUCT USED FOR UNKNOWN INDICATION
     Dosage: 10 MG, ONCE DAILY, STOMACHACHE
     Route: 065
     Dates: start: 20160203, end: 20160212
  97. LAC-B [Concomitant]
     Active Substance: BIFIDOBACTERIUM SPP.
     Indication: PRODUCT USED FOR UNKNOWN INDICATION
     Dosage: 1 G, THRICE DAILY, AFTER EACH MEAL
     Route: 065
     Dates: start: 20160201, end: 20160204
  98. FEBURIC [Concomitant]
     Active Substance: FEBUXOSTAT
     Indication: PRODUCT USED FOR UNKNOWN INDICATION
     Dosage: 10 UNK, ONCE DAILY, AFTER BREAKFAST
     Route: 065
     Dates: start: 20161117, end: 20180119
  99. GLUCONSAN K [Concomitant]
     Active Substance: POTASSIUM GLUCONATE
     Dosage: 2 G, THRICE DAILY, AFTER EACH MEAL
     Route: 065
     Dates: start: 20180712, end: 20181205
  100. ADALAT [Concomitant]
     Active Substance: NIFEDIPINE
     Route: 065
     Dates: start: 20180122
  101. ADALAT [Concomitant]
     Active Substance: NIFEDIPINE
     Route: 065
     Dates: start: 20180405
  102. DOGMATYL [Concomitant]
     Active Substance: SULPIRIDE
     Indication: PRODUCT USED FOR UNKNOWN INDICATION
     Dosage: 25 MG, TWICE DAILY, AFTER BREAKFAST AND SUPPER, 14 DAYS
     Route: 048
     Dates: start: 20180208, end: 20180320
  103. DOGMATYL [Concomitant]
     Active Substance: SULPIRIDE
     Dosage: 25 MG, TWICE DAILY, AFTER BREAKFAST AND SUPPER, 14 DAYS
     Route: 048
     Dates: start: 20181122, end: 20181205
  104. MERISLON [Concomitant]
     Active Substance: BETAHISTINE MESILATE
     Dosage: 6 MG, THRICE DAILY, AFTER EACH MEAL, 14 DAYS
     Route: 048
     Dates: start: 20170712, end: 20170725
  105. RIVOTRIL [Concomitant]
     Active Substance: CLONAZEPAM
     Dosage: 0.5 MG, ONCE DAILY, BEFORE SLEEPING, 14 DAYS
     Route: 048
     Dates: start: 20181122, end: 20181205
  106. SYMMETREL [Concomitant]
     Active Substance: AMANTADINE HYDROCHLORIDE
     Dosage: 25 MG, TWICE DAILY, AFTER BREAKFAST AND SUPPER, 14 DAYS
     Route: 048
     Dates: start: 20181122, end: 20181205
  107. CONSTAN                            /00595201/ [Concomitant]
     Active Substance: ALPRAZOLAM
     Indication: ANXIETY
     Dosage: UNK UNK, AS NEEDED
     Route: 048
     Dates: start: 20180208
  108. RIZE                               /00624801/ [Concomitant]
     Active Substance: CLOTIAZEPAM
     Indication: ANXIETY
     Dosage: UNK UNK, THRICE DAILY, AFTER EACH MEAL
     Route: 048
     Dates: start: 20150827, end: 20151023
  109. RIZE                               /00624801/ [Concomitant]
     Active Substance: CLOTIAZEPAM
     Dosage: UNK UNK, THRICE DAILY, AFTER EACH MEAL
     Route: 048
     Dates: start: 20151210, end: 20160108
  110. ENSURE [Concomitant]
     Active Substance: AMINO ACIDS\DEXTROSE\ELECTROLYTES NOS\SOYBEAN OIL\VITAMINS
     Dosage: 1 TUBE, ONCE DAILY, AFTER BREAKFAST
     Route: 048
     Dates: start: 20151210, end: 20151219
  111. DEPAS [Concomitant]
     Dosage: 0.5 DF, THRICE DAILY
     Route: 065
     Dates: start: 20180712, end: 20181022
  112. LOXONIN [Concomitant]
     Active Substance: LOXOPROFEN SODIUM
     Dosage: 60 MG, ONCE DAILY,HURT
     Route: 065
     Dates: start: 20160211, end: 20160301
  113. TRAMCET [Concomitant]
     Active Substance: ACETAMINOPHEN\TRAMADOL
     Indication: PRODUCT USED FOR UNKNOWN INDICATION
     Dosage: UNK UNK, THRICE DAILY, AFTER EACH MEAL
     Route: 065
     Dates: start: 20150915, end: 20150925
  114. PRIMPERAN [Concomitant]
     Active Substance: METOCLOPRAMIDE HYDROCHLORIDE
     Route: 048
     Dates: start: 20171008, end: 20171010
  115. LOXONIN [Concomitant]
     Active Substance: LOXOPROFEN SODIUM
     Dosage: ONE PIECE, ONCE DAILY, ONCE DAILY
     Route: 050
     Dates: start: 20161006
  116. ADALAT [Concomitant]
     Active Substance: NIFEDIPINE
     Indication: PRODUCT USED FOR UNKNOWN INDICATION
     Dosage: 40 MG, ONCE DAILY, AFTER BREAKFAST
     Route: 065
     Dates: start: 20160128, end: 20160406
  117. TAKECAB [Concomitant]
     Active Substance: VONOPRAZAN FUMURATE
     Indication: PRODUCT USED FOR UNKNOWN INDICATION
     Dosage: 20 MG, ONCE DAILY, AFTER BREAKFAST
     Route: 065
     Dates: start: 20160310, end: 20160406
  118. BELSOMRA [Concomitant]
     Active Substance: SUVOREXANT
     Indication: PRODUCT USED FOR UNKNOWN INDICATION
     Dosage: 20 MG, ONCE DAILY, BEFORE SLEEPING
     Route: 065
     Dates: start: 20160205, end: 20160217
  119. FLORINEF ACETATE [Concomitant]
     Active Substance: FLUDROCORTISONE ACETATE
     Dosage: 0.5 DF, TWICE DAILY, AFTER BREAKFAST AND LUNCH
     Route: 065
     Dates: start: 20171201, end: 20181205
  120. MERISLON [Concomitant]
     Active Substance: BETAHISTINE MESILATE
     Dosage: 6 MG, THRICE DAILY, AFTER EACH MEAL
     Route: 048
     Dates: start: 20181023, end: 20181029
  121. NASONEX [Concomitant]
     Active Substance: MOMETASONE FUROATE
     Route: 045
     Dates: start: 20171222
  122. CONSTAN                            /00595201/ [Concomitant]
     Active Substance: ALPRAZOLAM
     Indication: IRRITABILITY
     Dosage: 0.2 MG, THRICE DAILY, AFTER EACH MEAL, 14 DAYS
     Route: 048
     Dates: start: 20180208, end: 20180221
  123. CONSTAN                            /00595201/ [Concomitant]
     Active Substance: ALPRAZOLAM
     Dosage: 0.2 MG, THRICE DAILY, AFTER EACH MEAL, 14 DAYS
     Route: 048
     Dates: start: 20180208, end: 20180320
  124. ADALAT [Concomitant]
     Active Substance: NIFEDIPINE
     Route: 048
     Dates: start: 20170413, end: 20170604
  125. ADALAT [Concomitant]
     Active Substance: NIFEDIPINE
     Route: 048
     Dates: start: 20170605, end: 20170702
  126. RIZE                               /00624801/ [Concomitant]
     Active Substance: CLOTIAZEPAM
     Dosage: UNK UNK, THRICE DAILY, AFTER EACH MEAL
     Route: 048
     Dates: start: 20160310, end: 20160406
  127. DEPAS [Concomitant]
     Indication: ANXIETY
     Dosage: 0.5 DF, THRICE DAILY
     Route: 065
     Dates: start: 20150915, end: 20150925
  128. VOLTAREN [Concomitant]
     Active Substance: DICLOFENAC SODIUM
     Indication: PRODUCT USED FOR UNKNOWN INDICATION
     Route: 065
     Dates: start: 20150915
  129. VOLTAREN [Concomitant]
     Active Substance: DICLOFENAC SODIUM
     Route: 065
     Dates: start: 20171102
  130. NAUZELIN [Concomitant]
     Active Substance: DOMPERIDONE
     Indication: NAUSEA
     Dosage: 60 MG, UNKNOWN FREQ
     Route: 065
     Dates: start: 20151105, end: 20151124
  131. BELSOMRA [Concomitant]
     Active Substance: SUVOREXANT
     Indication: PRODUCT USED FOR UNKNOWN INDICATION
     Dosage: 20 MG, ONCE DAILY, BEFORE SLEEPING
     Route: 065
     Dates: start: 20160310, end: 20160323
  132. TRAVELMIN                          /00141802/ [Concomitant]
     Route: 065
     Dates: start: 20170911, end: 20170920
  133. LAC-B [Concomitant]
     Active Substance: BIFIDOBACTERIUM SPP.
     Dosage: 1 G, THRICE DAILY, AFTER EACH MEAL
     Route: 065
     Dates: start: 20161222, end: 20170301
  134. AZILVA [Concomitant]
     Active Substance: AZILSARTAN KAMEDOXOMIL
     Dosage: 20 MG, ONCE DAILY, AFTER BREAKFAST
     Route: 065
     Dates: start: 20170605, end: 20180111
  135. EPADEL-S [Concomitant]
     Active Substance: ICOSAPENT ETHYL
     Indication: PRODUCT USED FOR UNKNOWN INDICATION
     Dosage: 1 PACK, TWICE DAILY
     Route: 065
     Dates: start: 20170605, end: 20171127
  136. MIYA-BM [Concomitant]
     Active Substance: CLOSTRIDIUM BUTYRICUM SPORES STRAIN M-55
     Route: 065
     Dates: start: 20181105, end: 20181125
  137. FLORINEF ACETATE [Concomitant]
     Active Substance: FLUDROCORTISONE ACETATE
     Indication: PRODUCT USED FOR UNKNOWN INDICATION
     Dosage: 0.5 DF, TWICE DAILY, AFTER BREAKFAST AND LUNCH
     Route: 065
     Dates: start: 20171120, end: 20171128
  138. NAUZELIN [Concomitant]
     Active Substance: DOMPERIDONE
     Route: 065
     Dates: start: 20180111
  139. ADALAT [Concomitant]
     Active Substance: NIFEDIPINE
     Route: 065
     Dates: start: 20180524
  140. MERISLON [Concomitant]
     Active Substance: BETAHISTINE MESILATE
     Dosage: 6 MG, THRICE DAILY, AFTER EACH MEAL
     Route: 048
     Dates: start: 20171014, end: 20171219
  141. MERISLON [Concomitant]
     Active Substance: BETAHISTINE MESILATE
     Dosage: 6 MG, THRICE DAILY, AFTER EACH MEAL
     Route: 048
     Dates: start: 20180122, end: 20180201
  142. MERISLON [Concomitant]
     Active Substance: BETAHISTINE MESILATE
     Dosage: 6 MG, THRICE DAILY, AFTER EACH MEAL
     Route: 048
     Dates: start: 20180608, end: 20180705
  143. NASONEX [Concomitant]
     Active Substance: MOMETASONE FUROATE
     Route: 045
     Dates: start: 20180427
  144. ADETPHOS [Concomitant]
     Active Substance: ADENOSINE TRIPHOSPHATE
     Indication: PRODUCT USED FOR UNKNOWN INDICATION
     Dosage: 1 G, THRICE DAILY, AFTER EACH MEAL
     Route: 048
     Dates: start: 20151204, end: 20160108
  145. FLUITRAN [Concomitant]
     Active Substance: TRICHLORMETHIAZIDE
     Indication: PRODUCT USED FOR UNKNOWN INDICATION
     Route: 048
     Dates: start: 20150827, end: 20160406
  146. ADALAT [Concomitant]
     Active Substance: NIFEDIPINE
     Route: 048
     Dates: start: 20180712, end: 20181017
  147. SENNA [Concomitant]
     Active Substance: SENNA LEAF\SENNOSIDES\SENNOSIDES A AND B
     Indication: PRODUCT USED FOR UNKNOWN INDICATION
     Dosage: 0.5 G, ONCE DAILY, AFTER BREAKFAST
     Route: 048
     Dates: start: 20150827, end: 20160406
  148. SENNA [Concomitant]
     Active Substance: SENNA LEAF\SENNOSIDES\SENNOSIDES A AND B
     Dosage: 0.5 G, ONCE DAILY, AFTER BREAKFAST
     Route: 048
     Dates: start: 20170126, end: 20180113
  149. MAINTATE [Concomitant]
     Active Substance: BISOPROLOL FUMARATE
     Dosage: 5 MG, ONCE DAILY, AFTER BREAKFAST
     Route: 048
     Dates: start: 20180308
  150. RIZE                               /00624801/ [Concomitant]
     Active Substance: CLOTIAZEPAM
     Route: 048
     Dates: start: 20171005, end: 20171103
  151. ENSURE [Concomitant]
     Active Substance: AMINO ACIDS\DEXTROSE\ELECTROLYTES NOS\SOYBEAN OIL\VITAMINS
     Dosage: 1 UNK, ONCE DAILY
     Route: 048
     Dates: start: 20160128, end: 20160309
  152. KAMISHOYOSAN                       /07987101/ [Concomitant]
     Active Substance: HERBALS
     Indication: PRODUCT USED FOR UNKNOWN INDICATION
     Dosage: 1 PACK, THRICE DAILY, AFTER EACH MEAL
     Route: 065
     Dates: start: 20150827, end: 20160406
  153. MUCOSTA [Concomitant]
     Active Substance: REBAMIPIDE
     Indication: PRODUCT USED FOR UNKNOWN INDICATION
     Dosage: 100 MG, THRICE DAILY, AFTER EACH MEAL
     Route: 065
     Dates: start: 20150915, end: 20150925
  154. TAKEPRON [Concomitant]
     Active Substance: LANSOPRAZOLE
     Dosage: 30 MG, ONCE DAILY, AFTER BREAKFAST
     Route: 048
     Dates: start: 20151210, end: 20160309
  155. LOXONIN [Concomitant]
     Active Substance: LOXOPROFEN SODIUM
     Dosage: ONE PIECE, ONCE DAILY
     Route: 050
     Dates: start: 20180405
  156. ISOBIDE                            /00586301/ [Concomitant]
     Active Substance: ISOSORBIDE
     Indication: PRODUCT USED FOR UNKNOWN INDICATION
     Dosage: 30 ML, THRICE DAILY, AFTER EACH MEA
     Route: 048
     Dates: start: 20151204, end: 20160108
  157. TRAVELMIN                          /00141802/ [Concomitant]
     Indication: DIZZINESS
     Route: 065
     Dates: start: 20151211, end: 20151220
  158. ERYTHROCIN                         /00020901/ [Concomitant]
     Active Substance: ERYTHROMYCIN ETHYLSUCCINATE
     Indication: PRODUCT USED FOR UNKNOWN INDICATION
     Dosage: 200 MG, THRICE DAILY, AFTER EACH MEAL
     Route: 065
     Dates: start: 20160201, end: 20160204
  159. GLUCONSAN K [Concomitant]
     Active Substance: POTASSIUM GLUCONATE
     Dosage: 2 G, THRICE DAILY, AFTER EACH MEAL
     Route: 065
     Dates: start: 20171120, end: 20171128
  160. GLUCONSAN K [Concomitant]
     Active Substance: POTASSIUM GLUCONATE
     Dosage: 2 G, THRICE DAILY, AFTER EACH MEAL
     Route: 065
     Dates: start: 20171201, end: 20180524
  161. NAUZELIN [Concomitant]
     Active Substance: DOMPERIDONE
     Indication: NAUSEA
     Route: 065
     Dates: start: 20171205
  162. NAUZELIN [Concomitant]
     Active Substance: DOMPERIDONE
     Route: 065
     Dates: start: 20180122

REACTIONS (29)
  - Meniere^s disease [Recovering/Resolving]
  - Decreased appetite [Recovering/Resolving]
  - Abdominal discomfort [Recovered/Resolved]
  - Dizziness [Recovered/Resolved]
  - Malaise [Recovered/Resolved]
  - Hypertension [Recovered/Resolved]
  - Malaise [Recovered/Resolved]
  - Anxiety disorder [Not Recovered/Not Resolved]
  - Vomiting [Recovering/Resolving]
  - Electrolyte imbalance [Recovering/Resolving]
  - Chest discomfort [Recovering/Resolving]
  - Gastroenteritis [Recovering/Resolving]
  - Dizziness [Recovering/Resolving]
  - Chest discomfort [Recovered/Resolved]
  - Nausea [Recovering/Resolving]
  - Malaise [Recovering/Resolving]
  - Chest discomfort [Recovering/Resolving]
  - Diabetes mellitus [Not Recovered/Not Resolved]
  - Discomfort [Recovered/Resolved]
  - Dizziness [Recovering/Resolving]
  - Headache [Recovered/Resolved]
  - Diarrhoea [Recovered/Resolved]
  - Headache [Recovered/Resolved]
  - Chest discomfort [Recovered/Resolved]
  - Tremor [Recovering/Resolving]
  - Palpitations [Unknown]
  - Nausea [Recovered/Resolved]
  - Dizziness [Recovering/Resolving]
  - Dysphagia [Unknown]

NARRATIVE: CASE EVENT DATE: 2015
